FAERS Safety Report 9174947 (Version 2)
Quarter: 2013Q2

REPORT INFORMATION
  Report Type: Spontaneous
  Country: US (occurrence: None)
  Receive Date: 20120525
  Receipt Date: 20120827
  Transmission Date: 20140414
  Serious: Yes (Other)
  Sender: FDA-Public Use
  Company Number: 349367

PATIENT
  Age: 64 Year
  Sex: Male

DRUGS (2)
  1. VICTOZA [Suspect]
     Indication: TYPE 2 DIABETES MELLITUS
     Route: 058
  2. KOMBIGLYZE  (METFORMIN HYDROCHLORIDE, SAXAGLIPTIN HYDROCHLORIDE) [Concomitant]

REACTIONS (4)
  - Abdominal pain upper [None]
  - Flatulence [None]
  - Headache [None]
  - Blood glucose increased [None]
